FAERS Safety Report 9410043 (Version 2)
Quarter: 2013Q3

REPORT INFORMATION
  Report Type: Spontaneous
  Country: US (occurrence: US)
  Receive Date: 20130719
  Receipt Date: 20130802
  Transmission Date: 20140515
  Serious: Yes (Hospitalization, Other)
  Sender: FDA-Public Use
  Company Number: US-ABBOTT-13P-163-1118207-00

PATIENT
  Sex: Male

DRUGS (1)
  1. LUPRON DEPOT [Suspect]
     Indication: PROSTATE CANCER
     Route: 050
     Dates: start: 20130201, end: 201306

REACTIONS (16)
  - Mania [Recovering/Resolving]
  - Renal impairment [Recovered/Resolved]
  - Activities of daily living impaired [Recovering/Resolving]
  - Bradyphrenia [Recovering/Resolving]
  - Mobility decreased [Recovering/Resolving]
  - Abnormal behaviour [Recovering/Resolving]
  - Insomnia [Unknown]
  - Hypotension [Recovered/Resolved]
  - Incontinence [Recovering/Resolving]
  - Emotional disorder [Unknown]
  - Tearfulness [Unknown]
  - Impaired driving ability [Recovering/Resolving]
  - Impaired work ability [Recovering/Resolving]
  - Disturbance in social behaviour [Recovering/Resolving]
  - Decreased interest [Recovering/Resolving]
  - Insomnia [Unknown]
